FAERS Safety Report 23785262 (Version 2)
Quarter: 2024Q2

REPORT INFORMATION
  Report Type: Spontaneous
  Country: US (occurrence: US)
  Receive Date: 20240425
  Receipt Date: 20240520
  Transmission Date: 20240716
  Serious: Yes (Death, Other)
  Sender: FDA-Public Use
  Company Number: US-TEVA-VS-3185554

PATIENT
  Age: 5 Decade
  Sex: Female

DRUGS (10)
  1. EVEROLIMUS [Suspect]
     Active Substance: EVEROLIMUS
     Indication: Medullary thyroid cancer
     Route: 065
  2. CABOZANTINIB [Suspect]
     Active Substance: CABOZANTINIB
     Indication: Medullary thyroid cancer
     Route: 065
  3. SELPERCATINIB [Suspect]
     Active Substance: SELPERCATINIB
     Indication: Medullary thyroid cancer
     Route: 065
  4. SELPERCATINIB [Suspect]
     Active Substance: SELPERCATINIB
     Indication: Medullary thyroid cancer
     Route: 048
  5. SELPERCATINIB [Suspect]
     Active Substance: SELPERCATINIB
     Indication: Medullary thyroid cancer
     Route: 048
  6. LAROTRECTINIB [Suspect]
     Active Substance: LAROTRECTINIB
     Indication: Medullary thyroid cancer
     Route: 048
  7. LAROTRECTINIB [Suspect]
     Active Substance: LAROTRECTINIB
     Indication: Medullary thyroid cancer
     Dosage: INITIAL DOSE NOT STATED
     Route: 065
  8. LAROTRECTINIB [Suspect]
     Active Substance: LAROTRECTINIB
     Indication: Medullary thyroid cancer
     Route: 048
  9. ENTRECTINIB [Suspect]
     Active Substance: ENTRECTINIB
     Indication: Medullary thyroid cancer
     Route: 065
  10. ENTRECTINIB [Suspect]
     Active Substance: ENTRECTINIB
     Indication: Medullary thyroid cancer
     Route: 065

REACTIONS (10)
  - Drug ineffective [Fatal]
  - Fatigue [Unknown]
  - Drug resistance [Unknown]
  - Dry mouth [Unknown]
  - Diarrhoea [Unknown]
  - Memory impairment [Unknown]
  - Liver function test increased [Unknown]
  - Neuropathy peripheral [Unknown]
  - Dry eye [Unknown]
  - Visual impairment [Unknown]
